FAERS Safety Report 10411086 (Version 1)
Quarter: 2014Q2

REPORT INFORMATION
  Report Type: Spontaneous
  Country: US (occurrence: None)
  Receive Date: 20140514
  Receipt Date: 20140514
  Transmission Date: 20141212
  Serious: Yes (Hospitalization)
  Sender: FDA-Public Use
  Company Number: 099138U

PATIENT
  Sex: Female

DRUGS (1)
  1. CIMZIA [Suspect]
     Indication: CROHN^S DISEASE
     Dates: start: 20120601

REACTIONS (4)
  - Hospitalisation [None]
  - Headache [None]
  - Malaise [None]
  - Inappropriate schedule of drug administration [None]
